FAERS Safety Report 7743093-6 (Version None)
Quarter: 2011Q3

REPORT INFORMATION
  Report Type: 
  Country: None (occurrence: None)
  Receive Date: 20110912
  Receipt Date: 20110902
  Transmission Date: 20111222
  Serious: Yes (Death)
  Sender: FDA-Public Use
  Company Number: US-AMGEN-US370689

PATIENT
  Age: 79 Year
  Sex: Female
  Weight: 51.8 kg

DRUGS (2)
  1. NPLATE [Suspect]
     Indication: IDIOPATHIC THROMBOCYTOPENIC PURPURA
     Dosage: UNK
     Dates: start: 20081017
  2. NPLATE [Suspect]
     Dosage: 54 MUG/KG, UNK
     Dates: end: 20100118

REACTIONS (2)
  - PLATELET COUNT DECREASED [None]
  - DEATH [None]
